FAERS Safety Report 7562684-9 (Version None)
Quarter: 2011Q2

REPORT INFORMATION
  Report Type: 
  Country: None (occurrence: None)
  Receive Date: 20110622
  Receipt Date: 20110620
  Transmission Date: 20111010
  Serious: Yes (Death, Hospitalization)
  Sender: FDA-Public Use
  Company Number: DE-BRISTOL-MYERS SQUIBB COMPANY-15647811

PATIENT
  Age: 46 Year
  Sex: Male
  Weight: 80 kg

DRUGS (10)
  1. GABAPENTIN [Concomitant]
  2. MOVIPREP [Concomitant]
  3. CETUXIMAB [Suspect]
     Indication: HEAD AND NECK CANCER
     Dosage: STOPPED
     Route: 042
     Dates: start: 20110125
  4. FLUOROURACIL [Suspect]
     Indication: HEAD AND NECK CANCER
     Dosage: STOPPED
     Route: 042
     Dates: start: 20110125
  5. CISPLATIN [Suspect]
     Indication: HEAD AND NECK CANCER
     Dosage: STOPPED
     Route: 042
     Dates: start: 20110125
  6. PANTOPRAZOLE [Concomitant]
  7. FLUCONAZOLE [Concomitant]
  8. MORPHINE [Concomitant]
  9. ARCOXIA [Concomitant]
  10. DOXYCYCLINE [Concomitant]

REACTIONS (1)
  - ACUTE HEPATIC FAILURE [None]
